FAERS Safety Report 6014592-2 (Version None)
Quarter: 2008Q4

REPORT INFORMATION
  Report Type: 
  Country: None (occurrence: None)
  Receive Date: 20081219
  Receipt Date: 20081007
  Transmission Date: 20090506
  Serious: No
  Sender: FDA-Public Use
  Company Number: A0746334A

PATIENT
  Age: 82 Year
  Sex: Male

DRUGS (4)
  1. AVODART [Suspect]
     Indication: BENIGN PROSTATIC HYPERPLASIA
     Dosage: 1CAP PER DAY
     Route: 048
  2. ASPIRIN [Concomitant]
  3. ARICEPT [Concomitant]
  4. TOPICAL CREAM [Concomitant]

REACTIONS (2)
  - LOSS OF LIBIDO [None]
  - PRODUCT QUALITY ISSUE [None]
